FAERS Safety Report 9050474 (Version 1)
Quarter: 2013Q1

REPORT INFORMATION
  Report Type: Spontaneous
  Country: DE (occurrence: DE)
  Receive Date: 20130205
  Receipt Date: 20130205
  Transmission Date: 20140127
  Serious: Yes (Hospitalization, Other)
  Sender: FDA-Public Use
  Company Number: DE-BAYER-2012-067339

PATIENT
  Age: 21 Year
  Sex: Female
  Weight: 90 kg

DRUGS (3)
  1. AIDA [Suspect]
     Indication: ORAL CONTRACEPTION
     Dosage: 1 DF, QD
     Route: 048
     Dates: start: 200706, end: 201103
  2. PETIBELLE [Suspect]
     Indication: ORAL CONTRACEPTION
     Dosage: 1 DF, QD
     Route: 048
     Dates: start: 201103, end: 201202
  3. HORMONAL CONTRACEPTIVES FOR SYSTEMIC USE [Suspect]
     Indication: ORAL CONTRACEPTION
     Dosage: 1 DF, QD
     Route: 048
     Dates: start: 20120222, end: 20120229

REACTIONS (7)
  - Transverse sinus thrombosis [Recovered/Resolved]
  - Headache [Recovered/Resolved]
  - Metrorrhagia [None]
  - Papilloedema [Recovered/Resolved]
  - Visual impairment [Recovered/Resolved]
  - Vision blurred [Recovered/Resolved]
  - Benign intracranial hypertension [Recovered/Resolved]
